FAERS Safety Report 8307568-3 (Version None)
Quarter: 2012Q2

REPORT INFORMATION
  Report Type: 
  Country: None (occurrence: None)
  Receive Date: 20120424
  Receipt Date: 20120418
  Transmission Date: 20120825
  Serious: No
  Sender: FDA-Public Use
  Company Number: US-PFIZER INC-2012096981

PATIENT
  Sex: Female

DRUGS (4)
  1. POTASSIUM PENICILLIN G [Suspect]
     Dosage: UNK
  2. AMOXICILLIN [Suspect]
     Dosage: UNK
  3. ERYTHROMYCIN [Suspect]
     Dosage: UNK
  4. AZITHROMYCIN [Suspect]
     Dosage: UNK

REACTIONS (2)
  - MULTIPLE CHEMICAL SENSITIVITY [None]
  - DRUG HYPERSENSITIVITY [None]
